FAERS Safety Report 25207528 (Version 2)
Quarter: 2025Q2

REPORT INFORMATION
  Report Type: Spontaneous
  Country: JP (occurrence: JP)
  Receive Date: 20250417
  Receipt Date: 20250424
  Transmission Date: 20250717
  Serious: No
  Sender: ALEXION PHARMACEUTICALS
  Company Number: JP-ASTRAZENECA-250035317_013120_P_1

PATIENT

DRUGS (2)
  1. DURVALUMAB [Suspect]
     Active Substance: DURVALUMAB
     Indication: Endometrial cancer
     Dosage: 1120 MILLIGRAM, Q3W
  2. AVASTIN [Concomitant]
     Active Substance: BEVACIZUMAB
     Indication: Endometrial cancer
     Route: 065

REACTIONS (1)
  - No adverse event [Unknown]
